FAERS Safety Report 4906278-X (Version None)
Quarter: 2006Q1

REPORT INFORMATION
  Report Type: 
  Country: None (occurrence: None)
  Receive Date: 20060209
  Receipt Date: 20060123
  Transmission Date: 20060701
  Serious: Yes (Hospitalization)
  Sender: FDA-Public Use
  Company Number: ES-AVENTIS-200610449EU

PATIENT
  Age: 86 Year
  Sex: Male

DRUGS (2)
  1. SEGURIL [Suspect]
     Indication: ESSENTIAL HYPERTENSION
     Route: 048
     Dates: start: 20050207, end: 20050211
  2. GOPTEN [Suspect]
     Indication: ESSENTIAL HYPERTENSION
     Route: 048
     Dates: start: 20050207, end: 20050211

REACTIONS (1)
  - RENAL FAILURE ACUTE [None]
